FAERS Safety Report 4953381-4 (Version None)
Quarter: 2006Q1

REPORT INFORMATION
  Report Type: 
  Country: None (occurrence: None)
  Receive Date: 20060324
  Receipt Date: 20060316
  Transmission Date: 20060701
  Serious: Yes (Other)
  Sender: FDA-Public Use
  Company Number: US-SANOFI-SYNTHELABO-A03200601489

PATIENT
  Age: 56 Year
  Sex: Female

DRUGS (1)
  1. AMBIEN [Suspect]
     Indication: INSOMNIA
     Route: 048
     Dates: start: 20051001

REACTIONS (4)
  - DRUG DEPENDENCE [None]
  - DYSGEUSIA [None]
  - RETCHING [None]
  - RIB FRACTURE [None]
